FAERS Safety Report 4877079-6 (Version None)
Quarter: 2006Q1

REPORT INFORMATION
  Report Type: 
  Country: None (occurrence: None)
  Receive Date: 20060110
  Receipt Date: 20051213
  Transmission Date: 20060701
  Serious: Yes (Other)
  Sender: FDA-Public Use
  Company Number: US-MERCK-0512USA02132

PATIENT
  Age: 49 Year
  Sex: Male
  Weight: 114 kg

DRUGS (9)
  1. VIOXX [Suspect]
     Indication: ARTHRALGIA
     Route: 048
     Dates: start: 20021001, end: 20040601
  2. LIPITOR [Concomitant]
     Route: 065
  3. CRESTOR [Concomitant]
     Route: 065
  4. ALTACE [Concomitant]
     Route: 065
  5. ATACAND [Concomitant]
     Route: 065
  6. ACCUPRIL [Concomitant]
     Route: 065
  7. TOPROL-XL [Concomitant]
     Route: 065
  8. PREVACID [Concomitant]
     Route: 065
  9. NEXIUM [Concomitant]
     Route: 065

REACTIONS (8)
  - ANGINA PECTORIS [None]
  - BRADYCARDIA [None]
  - CARDIAC VALVE DISEASE [None]
  - CARPAL TUNNEL SYNDROME [None]
  - DIZZINESS [None]
  - DYSPNOEA [None]
  - MYOCARDIAL INFARCTION [None]
  - VIRAL INFECTION [None]
